FAERS Safety Report 7798131-1 (Version None)
Quarter: 2011Q4

REPORT INFORMATION
  Report Type: 
  Country: None (occurrence: None)
  Receive Date: 20111005
  Receipt Date: 20110928
  Transmission Date: 20120403
  Serious: Yes (Other)
  Sender: FDA-Public Use
  Company Number: DE-PFIZER INC-2011233832

PATIENT

DRUGS (3)
  1. SIROLIMUS [Suspect]
     Dosage: 6 MG/KG,
  2. SIROLIMUS [Suspect]
     Dosage: 2 MG/KG, 1X/DAY
  3. MYCOPHENOLATE MOFETIL [Suspect]
     Dosage: 1 G, 2X/DAY

REACTIONS (1)
  - GASTRIC ULCER [None]
